FAERS Safety Report 10185908 (Version 1)
Quarter: 2014Q2

REPORT INFORMATION
  Report Type: Spontaneous
  Country: ES (occurrence: IT)
  Receive Date: 20140521
  Receipt Date: 20140521
  Transmission Date: 20141212
  Serious: Yes (Other)
  Sender: FDA-Public Use
  Company Number: IT-FRI-1000067411

PATIENT
  Age: 59 Year
  Sex: Female

DRUGS (2)
  1. ACLIDINIUM [Suspect]
     Dosage: 322 MCG
     Route: 055
     Dates: start: 20140427, end: 20140427
  2. BRUFEN [Concomitant]

REACTIONS (3)
  - Bronchospasm [Recovering/Resolving]
  - Dry mouth [Recovering/Resolving]
  - Dyspnoea [Recovering/Resolving]
